FAERS Safety Report 19589591 (Version 1)
Quarter: 2021Q3

REPORT INFORMATION
  Report Type: Spontaneous
  Country: JP (occurrence: JP)
  Receive Date: 20210721
  Receipt Date: 20210721
  Transmission Date: 20211014
  Serious: Yes (Hospitalization)
  Sender: FDA-Public Use
  Company Number: JP-ROCHE-2874451

PATIENT
  Age: 83 Year
  Sex: Male
  Weight: 46 kg

DRUGS (4)
  1. AVASTIN [Suspect]
     Active Substance: BEVACIZUMAB
     Indication: HEPATOCELLULAR CARCINOMA
     Route: 041
     Dates: start: 20210308
  2. ELIQUIS [Suspect]
     Active Substance: APIXABAN
     Indication: PRODUCT USED FOR UNKNOWN INDICATION
     Dosage: 20 UNK
     Route: 048
     Dates: start: 20210210, end: 20210511
  3. TECENTRIQ [Suspect]
     Active Substance: ATEZOLIZUMAB
     Indication: HEPATOCELLULAR CARCINOMA
     Route: 041
  4. AVASTIN [Suspect]
     Active Substance: BEVACIZUMAB
     Dosage: 760 MILLIGRAM, ONCE/3WEEKS
     Route: 041
     Dates: start: 20210420, end: 20210511

REACTIONS (2)
  - Cerebral haemorrhage [Recovering/Resolving]
  - Jaundice [Recovering/Resolving]

NARRATIVE: CASE EVENT DATE: 20210510
